FAERS Safety Report 5282609-9 (Version None)
Quarter: 2007Q1

REPORT INFORMATION
  Report Type: 
  Country: None (occurrence: None)
  Receive Date: 20070326
  Receipt Date: 20070308
  Transmission Date: 20070707
  Serious: Yes (Other)
  Sender: FDA-Public Use
  Company Number: 8022467

PATIENT
  Age: 26 Year
  Sex: Female

DRUGS (2)
  1. KEPPRA [Suspect]
     Dosage: 200 MG/D
  2. OTC COLD MEDICATION [Concomitant]

REACTIONS (2)
  - ABORTION SPONTANEOUS [None]
  - DRUG EXPOSURE DURING PREGNANCY [None]
